FAERS Safety Report 12370721 (Version 28)
Quarter: 2020Q2

REPORT INFORMATION
  Report Type: Report from Study
  Country: CA (occurrence: CA)
  Receive Date: 20160516
  Receipt Date: 20200611
  Transmission Date: 20200713
  Serious: Yes (Other)
  Sender: FDA-Public Use
  Company Number: CA-ROCHE-1511825

PATIENT
  Age: 76 Year
  Sex: Female
  Weight: 72 kg

DRUGS (14)
  1. RITUXAN [Suspect]
     Active Substance: RITUXIMAB
     Indication: RHEUMATOID ARTHRITIS
     Route: 042
     Dates: start: 20191203, end: 20191218
  2. SULFASALAZINE DELAYED-RELEASE [Concomitant]
     Active Substance: SULFASALAZINE
     Dosage: DOSE INCREASED TO 560 MG
     Route: 065
  3. ROSUVASTATIN. [Concomitant]
     Active Substance: ROSUVASTATIN
  4. ACTEMRA [Suspect]
     Active Substance: TOCILIZUMAB
     Route: 042
     Dates: start: 20150603
  5. BISOPROLOL [Concomitant]
     Active Substance: BISOPROLOL
  6. ACETYLSALICYLIC ACID [Concomitant]
     Active Substance: ASPIRIN
  7. SPIRONOLACTONE. [Concomitant]
     Active Substance: SPIRONOLACTONE
  8. ACTEMRA [Suspect]
     Active Substance: TOCILIZUMAB
     Route: 042
     Dates: start: 20160321
  9. ACTEMRA [Suspect]
     Active Substance: TOCILIZUMAB
     Route: 042
     Dates: start: 20160719
  10. METHOTREXATE. [Suspect]
     Active Substance: METHOTREXATE
     Indication: PRODUCT USED FOR UNKNOWN INDICATION
     Route: 065
  11. ACTEMRA [Suspect]
     Active Substance: TOCILIZUMAB
     Indication: RHEUMATOID ARTHRITIS
     Route: 042
     Dates: start: 20141119
  12. ACTEMRA [Suspect]
     Active Substance: TOCILIZUMAB
     Route: 042
     Dates: start: 20170103
  13. ACTEMRA [Suspect]
     Active Substance: TOCILIZUMAB
     Dosage: FORMULATION: 400X20ML
     Route: 042
     Dates: start: 20140903
  14. LASIX [Concomitant]
     Active Substance: FUROSEMIDE

REACTIONS (33)
  - Blood cholesterol abnormal [Unknown]
  - Skin ulcer [Recovered/Resolved]
  - Angiopathy [Unknown]
  - Haematoma [Unknown]
  - Arthralgia [Not Recovered/Not Resolved]
  - Blood cholesterol increased [Not Recovered/Not Resolved]
  - Joint stiffness [Unknown]
  - Arterial occlusive disease [Not Recovered/Not Resolved]
  - Weight increased [Unknown]
  - Groin pain [Not Recovered/Not Resolved]
  - Therapeutic product effect decreased [Unknown]
  - Wrong technique in product usage process [Unknown]
  - Hypotension [Unknown]
  - Lower respiratory tract infection [Unknown]
  - Vein collapse [Recovered/Resolved]
  - Blood pressure systolic increased [Unknown]
  - Dyspnoea [Not Recovered/Not Resolved]
  - Drug ineffective [Unknown]
  - Vascular fragility [Unknown]
  - Hypertension [Unknown]
  - Blood pressure diastolic abnormal [Unknown]
  - Anger [Unknown]
  - Vascular injury [Recovered/Resolved]
  - Dysphonia [Not Recovered/Not Resolved]
  - Drug intolerance [Not Recovered/Not Resolved]
  - Musculoskeletal discomfort [Unknown]
  - Lung neoplasm malignant [Unknown]
  - Wound infection [Unknown]
  - Pneumonia [Recovered/Resolved]
  - Gait disturbance [Unknown]
  - Musculoskeletal stiffness [Unknown]
  - Arthralgia [Unknown]
  - Weight increased [Unknown]

NARRATIVE: CASE EVENT DATE: 20141218
